FAERS Safety Report 26093779 (Version 1)
Quarter: 2025Q4

REPORT INFORMATION
  Report Type: Spontaneous
  Country: EU (occurrence: EU)
  Receive Date: 20251126
  Receipt Date: 20251126
  Transmission Date: 20260117
  Serious: Yes (Other)
  Sender: SANDOZ
  Company Number: EU-002147023-NVSC2025GR165105

PATIENT
  Age: 64 Year
  Sex: Female

DRUGS (8)
  1. BRIMONIDINE [Suspect]
     Active Substance: BRIMONIDINE TARTRATE
     Indication: Angle closure glaucoma
     Dosage: UNK
     Route: 047
  2. BRIMONIDINE [Suspect]
     Active Substance: BRIMONIDINE TARTRATE
     Indication: Intraocular pressure test abnormal
  3. BRINZOLAMIDE [Suspect]
     Active Substance: BRINZOLAMIDE
     Indication: Angle closure glaucoma
     Dosage: UNK
     Route: 047
  4. BRINZOLAMIDE [Suspect]
     Active Substance: BRINZOLAMIDE
     Indication: Intraocular pressure test abnormal
  5. TAFLUPROST [Suspect]
     Active Substance: TAFLUPROST
     Indication: Angle closure glaucoma
     Dosage: UNK
     Route: 065
  6. TAFLUPROST [Suspect]
     Active Substance: TAFLUPROST
     Indication: Intraocular pressure test abnormal
  7. TIMOLOL [Suspect]
     Active Substance: TIMOLOL
     Indication: Angle closure glaucoma
     Route: 047
  8. TIMOLOL [Suspect]
     Active Substance: TIMOLOL
     Indication: Intraocular pressure test abnormal

REACTIONS (2)
  - Glaucoma [Recovered/Resolved]
  - Therapeutic product effect incomplete [Unknown]
